FAERS Safety Report 7385199-X (Version None)
Quarter: 2011Q1

REPORT INFORMATION
  Report Type: 
  Country: None (occurrence: None)
  Receive Date: 20110330
  Receipt Date: 20101222
  Transmission Date: 20110831
  Serious: No
  Sender: FDA-Public Use
  Company Number: PR-MYLANLABS-2010S1023628

PATIENT
  Age: 63 Year
  Sex: Male

DRUGS (4)
  1. NIFEDIPINE [Suspect]
     Indication: BLOOD PRESSURE
     Route: 048
     Dates: start: 20101111, end: 20101201
  2. CAPOZIDE 25/15 [Concomitant]
  3. METFORMIN [Concomitant]
  4. JANUMET [Concomitant]

REACTIONS (1)
  - DYSPNOEA [None]
